FAERS Safety Report 13642661 (Version 1)
Quarter: 2017Q2

REPORT INFORMATION
  Report Type: Spontaneous
  Country: US (occurrence: US)
  Receive Date: 20170612
  Receipt Date: 20170612
  Transmission Date: 20170830
  Serious: Yes (Other)
  Sender: FDA-Public Use
  Company Number: US-FRESENIUS KABI-FK201704804

PATIENT
  Age: 15 Month
  Sex: Female

DRUGS (3)
  1. LINEZOLID (MANUFACTURER UNKNOWN) [Suspect]
     Active Substance: LINEZOLID
     Indication: THYMUS ABSCESS
     Route: 048
  2. VANCOMYCIN (MANUFACTURER UNKNOWN) [Suspect]
     Active Substance: VANCOMYCIN
     Indication: THYMUS ABSCESS
     Route: 042
  3. CEFTRIAXON (MANUFACTURER UNKNOWN) [Suspect]
     Active Substance: CEFTRIAXONE
     Indication: THYMUS ABSCESS
     Route: 042

REACTIONS (3)
  - Pyrexia [Recovered/Resolved]
  - Neutropenia [Recovered/Resolved]
  - Bone marrow failure [Recovered/Resolved]
